FAERS Safety Report 13710990 (Version 1)
Quarter: 2017Q2

REPORT INFORMATION
  Report Type: Spontaneous
  Country: US (occurrence: US)
  Receive Date: 20170630
  Receipt Date: 20170630
  Transmission Date: 20170830
  Serious: Yes (Hospitalization)
  Sender: FDA-Public Use
  Company Number: None

PATIENT
  Age: 50 Year
  Sex: Male
  Weight: 93.8 kg

DRUGS (1)
  1. GADOBUTROL [Suspect]
     Active Substance: GADOBUTROL
     Indication: SEIZURE
     Dates: start: 20160819, end: 20160819

REACTIONS (2)
  - Blood pressure systolic decreased [None]
  - Anaphylactic reaction [None]

NARRATIVE: CASE EVENT DATE: 20160819
